FAERS Safety Report 15611077 (Version 1)
Quarter: 2018Q4

REPORT INFORMATION
  Report Type: Spontaneous
  Country: US (occurrence: US)
  Receive Date: 20181113
  Receipt Date: 20181113
  Transmission Date: 20190205
  Serious: No
  Sender: FDA-Public Use
  Company Number: US-ROCHE-2044142

PATIENT
  Age: 70 Year
  Sex: Female
  Weight: 67.19 kg

DRUGS (3)
  1. TAXOL [Concomitant]
     Active Substance: PACLITAXEL
     Dosage: AFTER 12 WEEKS, IT WAS DISCONTINUED
     Route: 065
     Dates: start: 2017
  2. HERCEPTIN [Suspect]
     Active Substance: TRASTUZUMAB
     Indication: PRODUCT USED FOR UNKNOWN INDICATION
     Route: 065
     Dates: start: 2017
  3. HERCEPTIN [Suspect]
     Active Substance: TRASTUZUMAB
     Dosage: TRIPLED INITIAL DOSE
     Route: 065
     Dates: start: 2017

REACTIONS (2)
  - Nasopharyngitis [Unknown]
  - Rash [Unknown]

NARRATIVE: CASE EVENT DATE: 201712
